FAERS Safety Report 4467338-3 (Version None)
Quarter: 2004Q4

REPORT INFORMATION
  Report Type: 
  Country: None (occurrence: None)
  Receive Date: 20041006
  Receipt Date: 20041001
  Transmission Date: 20050328
  Serious: Yes (Other)
  Sender: FDA-Public Use
  Company Number: PHEH2004US10634

PATIENT
  Age: 54 Year
  Sex: Male

DRUGS (2)
  1. TRILEPTAL [Suspect]
     Indication: EPILEPSY
     Dosage: 300 MG, BID
     Route: 048
     Dates: start: 20000101
  2. TOPAMAX [Suspect]
     Indication: EPILEPSY
     Dosage: 375 MG, QD
     Route: 048
     Dates: start: 20030101

REACTIONS (5)
  - ANGER [None]
  - CARDIAC VALVE DISEASE [None]
  - MITRAL VALVE DISEASE [None]
  - MITRAL VALVE INCOMPETENCE [None]
  - MOOD SWINGS [None]
